FAERS Safety Report 13693023 (Version 1)
Quarter: 2017Q2

REPORT INFORMATION
  Report Type: Spontaneous
  Country: RU (occurrence: RU)
  Receive Date: 20170627
  Receipt Date: 20170627
  Transmission Date: 20170830
  Serious: Yes (Other)
  Sender: FDA-Public Use
  Company Number: RU-SUN PHARMACEUTICAL INDUSTRIES LTD-2017RR-143726

PATIENT
  Age: 86 Year
  Sex: Female

DRUGS (9)
  1. DEXAMETHASONE. [Concomitant]
     Active Substance: DEXAMETHASONE
     Indication: PRODUCT USED FOR UNKNOWN INDICATION
     Dosage: 2 DROPS TID IN THE LEFT EYE
     Route: 031
  2. TIMOLOL. [Interacting]
     Active Substance: TIMOLOL
     Indication: PRODUCT USED FOR UNKNOWN INDICATION
     Dosage: 2 DROPS EACH TIME, BID, IN EACH EYE
     Route: 031
  3. DEXAMETHASONE. [Concomitant]
     Active Substance: DEXAMETHASONE
     Dosage: 4MG/ 1 L ONCE DAILY
     Route: 030
  4. TROPICAMIDE. [Interacting]
     Active Substance: TROPICAMIDE
     Indication: MYDRIASIS
     Dosage: 0.5%, 1 DROP, BID
     Route: 031
  5. ACETAZOLAMIDE. [Suspect]
     Active Substance: ACETAZOLAMIDE
     Indication: INTRAOCULAR PRESSURE TEST
     Dosage: 125 MG, BID
     Route: 065
  6. SULPHACIL NATRIUM  20% [Concomitant]
     Indication: PRODUCT USED FOR UNKNOWN INDICATION
     Dosage: TID,  IN BOTH EYES
     Route: 065
  7. DICLOFENAC SODIUM. [Concomitant]
     Active Substance: DICLOFENAC SODIUM
     Indication: PRODUCT USED FOR UNKNOWN INDICATION
     Dosage: 75 MG/ 3 ML ONCE DAILY
     Route: 030
  8. INDAPAMIDE. [Interacting]
     Active Substance: INDAPAMIDE
     Indication: HYPERTENSION
     Dosage: 2.5 MG, DAILY
     Route: 048
  9. DIAZEPAM. [Concomitant]
     Active Substance: DIAZEPAM
     Indication: SEDATION
     Dosage: 2 ML, UNK
     Route: 030

REACTIONS (5)
  - Hypotension [Unknown]
  - Bradycardia [Unknown]
  - Loss of consciousness [Unknown]
  - Drug interaction [Unknown]
  - Fall [Unknown]
